FAERS Safety Report 9856149 (Version 14)
Quarter: 2014Q2

REPORT INFORMATION
  Report Type: Report from Study
  Country: CA (occurrence: CA)
  Receive Date: 20140130
  Receipt Date: 20140520
  Transmission Date: 20141212
  Serious: Yes (Hospitalization, Other)
  Sender: FDA-Public Use
  Company Number: CA-ROCHE-1318457

PATIENT
  Age: 67 Year
  Sex: Female
  Weight: 61.7 kg

DRUGS (10)
  1. AVASTIN [Suspect]
     Indication: OVARIAN CANCER RECURRENT
     Dosage: MOST RECENT DOSE WAS TAKEN ON 08/DEC/2013
     Route: 042
     Dates: start: 20131120, end: 20140108
  2. LYRICA [Concomitant]
  3. NAPROXEN [Concomitant]
  4. CITALOPRAM [Concomitant]
  5. SENOKOT [Concomitant]
  6. LIPITOR [Concomitant]
  7. OXAZEPAM [Concomitant]
  8. QUETIAPINE [Concomitant]
  9. DOCUSATE [Concomitant]
  10. SYNTHROID [Concomitant]

REACTIONS (19)
  - Vomiting [Unknown]
  - Disease progression [Unknown]
  - Protein urine present [Unknown]
  - Haemoptysis [Not Recovered/Not Resolved]
  - Dyspnoea [Unknown]
  - Blood calcium increased [Unknown]
  - Urinary tract infection [Recovered/Resolved]
  - Off label use [Unknown]
  - Haemoglobin decreased [Recovering/Resolving]
  - Neutrophil count decreased [Not Recovered/Not Resolved]
  - Nasopharyngitis [Unknown]
  - Epistaxis [Not Recovered/Not Resolved]
  - Dyspnoea [Not Recovered/Not Resolved]
  - Cough [Not Recovered/Not Resolved]
  - Haematocrit decreased [Unknown]
  - Red blood cell count decreased [Unknown]
  - Red cell distribution width increased [Unknown]
  - Lymphocyte count decreased [Unknown]
  - Stomatitis [Recovered/Resolved]
